FAERS Safety Report 8179771-7 (Version None)
Quarter: 2012Q1

REPORT INFORMATION
  Report Type: 
  Country: None (occurrence: None)
  Receive Date: 20120302
  Receipt Date: 20120223
  Transmission Date: 20120608
  Serious: Yes (Death, Other)
  Sender: FDA-Public Use
  Company Number: JP-B.I. PHARMACEUTICALS,INC./RIDGEFIELD-2012-EU-01194GD

PATIENT
  Age: 81 Year
  Sex: Female

DRUGS (5)
  1. FUROSEMIDE [Concomitant]
     Route: 042
  2. CARVEDILOL [Concomitant]
     Dosage: 2.5 MG
     Route: 048
  3. PRADAXA [Suspect]
     Indication: ATRIAL FIBRILLATION
     Dosage: 220 MG
     Route: 048
     Dates: start: 20110516, end: 20110601
  4. LASIX [Concomitant]
     Route: 042
  5. LEVOFLOXACIN [Concomitant]
     Route: 042

REACTIONS (3)
  - CARDIAC FAILURE [None]
  - PNEUMONIA [None]
  - CONDITION AGGRAVATED [None]
